FAERS Safety Report 14754105 (Version 1)
Quarter: 2018Q2

REPORT INFORMATION
  Report Type: Spontaneous
  Country: US (occurrence: US)
  Receive Date: 20180406
  Receipt Date: 20180406
  Transmission Date: 20180711
  Serious: Yes (Other)
  Sender: FDA-Public Use
  Company Number: None

PATIENT
  Age: 63 Year
  Sex: Female
  Weight: 74.25 kg

DRUGS (8)
  1. AMLODAPINE [Concomitant]
  2. CYMBALTA [Concomitant]
     Active Substance: DULOXETINE HYDROCHLORIDE
  3. CELEBREX [Concomitant]
     Active Substance: CELECOXIB
  4. GAS PILLS [Concomitant]
  5. CRESTOR [Suspect]
     Active Substance: ROSUVASTATIN CALCIUM
     Indication: BLOOD CHOLESTEROL INCREASED
     Dosage: ?          QUANTITY:1 DF DOSAGE FORM;?
     Route: 048
  6. PANTOPROZOLE [Concomitant]
  7. LYRICS [Concomitant]
  8. HUMORS IINJ. [Concomitant]

REACTIONS (6)
  - Fatigue [None]
  - Amnesia [None]
  - Myalgia [None]
  - Asthenia [None]
  - Confusional state [None]
  - Back pain [None]

NARRATIVE: CASE EVENT DATE: 20180323
